FAERS Safety Report 9648187 (Version 2)
Quarter: 2013Q4

REPORT INFORMATION
  Report Type: Spontaneous
  Country: FR (occurrence: FR)
  Receive Date: 20131028
  Receipt Date: 20131101
  Transmission Date: 20140711
  Serious: Yes (Hospitalization)
  Sender: FDA-Public Use
  Company Number: PHHY2013FR120395

PATIENT
  Age: 76 Year
  Sex: Female

DRUGS (13)
  1. RASILEZ HCT [Suspect]
     Indication: HYPERTENSION
     Dosage: 1 DF, QD (300 MG ALSKI/25 MG HCT)
     Route: 048
     Dates: start: 20130702
  2. PHYSIOTENS [Suspect]
     Indication: HYPERTENSION
     Dosage: 0.4 MG, QD
     Route: 048
     Dates: start: 20130702
  3. NUREFLEX [Suspect]
     Indication: PAIN
     Dosage: 800 MG, QD
     Route: 048
     Dates: start: 20130702
  4. CRESTOR [Concomitant]
     Indication: DYSLIPIDAEMIA
     Dosage: 5 MG, QD
     Route: 048
     Dates: start: 20130702
  5. MOPRAL [Concomitant]
     Indication: GASTROOESOPHAGEAL REFLUX DISEASE
     Dosage: 20 MG, QD
     Route: 048
     Dates: start: 20130702
  6. STILNOX [Concomitant]
     Indication: INSOMNIA
     Dosage: 10 MG, QD
     Route: 048
     Dates: start: 20130702
  7. SEROPLEX [Concomitant]
     Indication: DEPRESSION
     Dosage: 5 MG, QD
     Route: 048
     Dates: start: 20130702
  8. CELIPROLOL [Concomitant]
     Indication: HYPERTENSION
     Dosage: 200 MG, QD
     Route: 048
     Dates: start: 20130702
  9. AERIUS [Concomitant]
     Indication: HYPERSENSITIVITY
     Dosage: 5 MG, QD
     Route: 048
     Dates: start: 20130702
  10. LEXOMIL [Concomitant]
     Indication: ANXIETY
     Dosage: 6 MG, QD
     Route: 048
     Dates: start: 20130702
  11. TRANSIPEG//MACROGOL [Concomitant]
     Indication: CONSTIPATION
     Dosage: 5.9 G, QD
     Route: 048
     Dates: start: 20130702
  12. SURMONTIL//TRIMIPRAMINE [Concomitant]
     Indication: DEPRESSION
     Dosage: 25 MG, QD
     Route: 048
     Dates: start: 20130702
  13. LAMALINE [Concomitant]
     Dosage: 1 TO 3 DFS QD
     Route: 048

REACTIONS (7)
  - Rhabdomyolysis [Recovered/Resolved]
  - Dehydration [Recovered/Resolved]
  - Orthostatic hypotension [Recovered/Resolved]
  - Renal failure acute [Recovering/Resolving]
  - Blood creatinine increased [Recovering/Resolving]
  - Blood urea increased [Recovering/Resolving]
  - Blood creatine phosphokinase increased [Recovering/Resolving]
